FAERS Safety Report 4535645-1 (Version None)
Quarter: 2004Q4

REPORT INFORMATION
  Report Type: 
  Country: None (occurrence: None)
  Receive Date: 20041222
  Receipt Date: 20041222
  Transmission Date: 20050328
  Serious: Yes (Life-Threatening, Other)
  Sender: FDA-Public Use
  Company Number: None

PATIENT
  Age: 42 Year
  Sex: Female
  Weight: 99.7913 kg

DRUGS (7)
  1. PROZAC [Suspect]
     Indication: BIPOLAR DISORDER
     Dosage: 20 MG PO QD
     Route: 048
  2. PROZAC [Suspect]
     Indication: DEPRESSION
     Dosage: 20 MG PO QD
     Route: 048
  3. NEURONTIN [Concomitant]
  4. ZYPREXA [Concomitant]
  5. INTERFERON [Concomitant]
  6. RIBOVIRIN [Concomitant]
  7. PERCOCET [Concomitant]

REACTIONS (4)
  - BURNING SENSATION [None]
  - PHARMACEUTICAL PRODUCT COMPLAINT [None]
  - SENSATION OF FOREIGN BODY [None]
  - VOMITING [None]
